FAERS Safety Report 4727748-3 (Version None)
Quarter: 2005Q3

REPORT INFORMATION
  Report Type: 
  Country: None (occurrence: None)
  Receive Date: 20050727
  Receipt Date: 20050715
  Transmission Date: 20060218
  Serious: Yes (Other)
  Sender: FDA-Public Use
  Company Number: 2005BH000852

PATIENT
  Age: 73 Year
  Sex: 0
  Weight: 33 kg

DRUGS (16)
  1. EXTRANEAL [Suspect]
     Indication: RENAL FAILURE CHRONIC
     Dosage: 1000 ML; EVERY DAY; IP
     Route: 033
     Dates: start: 20040624, end: 20050131
  2. DIANEAL [Concomitant]
  3. DIANEAL PD4 ULTRABAG [Concomitant]
  4. VALSARTAN [Concomitant]
  5. LASIX [Concomitant]
  6. SPIRONOLACTONE [Concomitant]
  7. AMLODIN [Concomitant]
  8. PARIET [Concomitant]
  9. ALFAROL [Concomitant]
  10. NITRODERM [Concomitant]
  11. ONON [Concomitant]
  12. PANTOSIN [Concomitant]
  13. MAGNESIUM OXDE [Concomitant]
  14. GLUCONSAN K [Concomitant]
  15. HOKUNALIN [Concomitant]
  16. EPOETIN ALFA [Concomitant]

REACTIONS (2)
  - C-REACTIVE PROTEIN INCREASED [None]
  - HYPOKALAEMIA [None]
